FAERS Safety Report 4714105-9 (Version None)
Quarter: 2005Q2

REPORT INFORMATION
  Report Type: 
  Country: None (occurrence: None)
  Receive Date: 20050630
  Receipt Date: 20050327
  Transmission Date: 20051028
  Serious: Yes (Hospitalization)
  Sender: FDA-Public Use
  Company Number: 395127

PATIENT
  Age: 43 Year
  Sex: Male
  Weight: 83.9 kg

DRUGS (9)
  1. ROFERON-A [Suspect]
     Indication: HEPATITIS C
     Dosage: 3 PER WEEK
     Dates: start: 19990515, end: 19991215
  2. PEGASYS [Suspect]
     Indication: HEPATITIS C VIRUS
     Dosage: 180 MCG/ML 1 PER WEEK SUBCUTANEOUS
     Route: 058
     Dates: start: 20040713, end: 20050215
  3. RIBAVIRIN [Suspect]
     Indication: HEPATITIS C
     Dosage: 6 DOSE FORM DAILY
     Dates: start: 19990515, end: 19991215
  4. COPEGUS [Suspect]
     Indication: HEPATITIS C VIRUS
     Dosage: 200 MG 2 PER DAY ORAL
     Route: 048
     Dates: start: 20040713, end: 20050215
  5. LORTAB [Concomitant]
  6. VALIUM [Concomitant]
  7. NEXIUM [Concomitant]
  8. PHENERGAN [Concomitant]
  9. VITAMIN B12 [Concomitant]

REACTIONS (23)
  - ANAEMIA [None]
  - BACK PAIN [None]
  - BLOOD PRESSURE INCREASED [None]
  - CHILLS [None]
  - CONFUSIONAL STATE [None]
  - DEPRESSION [None]
  - DYSPNOEA [None]
  - EATING DISORDER [None]
  - FATIGUE [None]
  - HALLUCINATION [None]
  - HEART RATE INCREASED [None]
  - HEPATITIS C [None]
  - HYPERHIDROSIS [None]
  - IMMUNE SYSTEM DISORDER [None]
  - INCREASED UPPER AIRWAY SECRETION [None]
  - INFLUENZA [None]
  - INSOMNIA [None]
  - LOSS OF CONSCIOUSNESS [None]
  - LUNG INFECTION [None]
  - NAUSEA [None]
  - PYREXIA [None]
  - URTICARIA [None]
  - VOMITING [None]
